FAERS Safety Report 7211432-0 (Version None)
Quarter: 2011Q1

REPORT INFORMATION
  Report Type: 
  Country: None (occurrence: None)
  Receive Date: 20110105
  Receipt Date: 20101228
  Transmission Date: 20110831
  Serious: Yes (Hospitalization, Other)
  Sender: FDA-Public Use
  Company Number: FR-ABBOTT-10P-056-0694098-00

PATIENT
  Sex: Female

DRUGS (2)
  1. FOLIC ACID [Suspect]
     Indication: HYPOVITAMINOSIS
     Route: 048
  2. DEPAKENE [Suspect]
     Indication: EPILEPSY
     Route: 048

REACTIONS (3)
  - CAESAREAN SECTION [None]
  - PIERRE ROBIN SYNDROME [None]
  - MATERNAL DRUGS AFFECTING FOETUS [None]
